FAERS Safety Report 6889654-8 (Version None)
Quarter: 2010Q3

REPORT INFORMATION
  Report Type: 
  Country: None (occurrence: None)
  Receive Date: 20100730
  Receipt Date: 20080406
  Transmission Date: 20110219
  Serious: No
  Sender: FDA-Public Use
  Company Number: US-PFIZER INC-2008031133

PATIENT
  Sex: Female
  Weight: 70.454 kg

DRUGS (5)
  1. LIPITOR [Suspect]
     Indication: BLOOD CHOLESTEROL INCREASED
     Route: 048
     Dates: start: 20080321, end: 20080405
  2. LIPITOR [Suspect]
     Indication: LOW DENSITY LIPOPROTEIN INCREASED
  3. LITHIUM [Concomitant]
  4. ABILIFY [Concomitant]
  5. TEMAZEPAM [Concomitant]

REACTIONS (2)
  - DYSGEUSIA [None]
  - SLEEP TERROR [None]
